FAERS Safety Report 4720284-X (Version None)
Quarter: 2005Q3

REPORT INFORMATION
  Report Type: 
  Country: None (occurrence: None)
  Receive Date: 20050715
  Receipt Date: 20050714
  Transmission Date: 20060218
  Serious: No
  Sender: FDA-Public Use
  Company Number: ZONI002189

PATIENT
  Age: 13 Year
  Sex: Male

DRUGS (2)
  1. ZONISAMIDE [Suspect]
     Indication: EPILEPSY
     Dosage: 75 MG ORAL
     Route: 048
     Dates: start: 20030730
  2. VALPROATE SODIUM [Concomitant]

REACTIONS (4)
  - BLOOD URINE PRESENT [None]
  - HAEMATURIA [None]
  - NEPHROLITHIASIS [None]
  - URINE ANALYSIS ABNORMAL [None]
